FAERS Safety Report 24534089 (Version 1)
Quarter: 2024Q4

REPORT INFORMATION
  Report Type: Spontaneous
  Country: BR (occurrence: BR)
  Receive Date: 20241022
  Receipt Date: 20241022
  Transmission Date: 20250114
  Serious: Yes (Other)
  Sender: SANDOZ
  Company Number: BR-002147023-PHHY2019BR121692

PATIENT
  Sex: Male
  Weight: 75 kg

DRUGS (3)
  1. ALPRAZOLAM [Suspect]
     Active Substance: ALPRAZOLAM
     Indication: Product used for unknown indication
     Dosage: UNK
     Route: 065
     Dates: start: 201901
  2. ANAFRANIL [Suspect]
     Active Substance: CLOMIPRAMINE HYDROCHLORIDE
     Indication: Product used for unknown indication
     Route: 065
  3. CLOXAZOLAM [Suspect]
     Active Substance: CLOXAZOLAM
     Indication: Panic disorder
     Dosage: 1 DF, QD
     Route: 048

REACTIONS (9)
  - Drug dependence [Unknown]
  - Chest pain [Unknown]
  - Dyspnoea [Unknown]
  - Stress [Unknown]
  - Intervertebral disc protrusion [Unknown]
  - Malaise [Unknown]
  - Tachycardia [Unknown]
  - Expired product administered [Unknown]
  - Therapeutic response decreased [Unknown]
